FAERS Safety Report 13076124 (Version 2)
Quarter: 2020Q2

REPORT INFORMATION
  Report Type: Report from Study
  Country: AU (occurrence: AU)
  Receive Date: 20161230
  Receipt Date: 20200515
  Transmission Date: 20200713
  Serious: Yes (Other)
  Sender: FDA-Public Use
  Company Number: AU-JNJFOC-20161221326

PATIENT
  Sex: Male

DRUGS (1)
  1. REMICADE [Suspect]
     Active Substance: INFLIXIMAB
     Indication: PSORIASIS
     Route: 042

REACTIONS (5)
  - Arthralgia [Recovering/Resolving]
  - Product use issue [Unknown]
  - Gait inability [Recovering/Resolving]
  - Psoriasis [Recovering/Resolving]
  - Off label use [Unknown]
